FAERS Safety Report 6583053-4 (Version None)
Quarter: 2010Q1

REPORT INFORMATION
  Report Type: 
  Country: None (occurrence: None)
  Receive Date: 20100216
  Receipt Date: 20100209
  Transmission Date: 20100710
  Serious: Yes (Death, Hospitalization)
  Sender: FDA-Public Use
  Company Number: BR-ROCHE-681389

PATIENT
  Sex: Female
  Weight: 65 kg

DRUGS (1)
  1. XELODA [Suspect]
     Indication: BREAST CANCER METASTATIC
     Route: 048
     Dates: start: 20091224, end: 20100101

REACTIONS (5)
  - DEATH [None]
  - DIARRHOEA [None]
  - MUCOSAL NECROSIS [None]
  - SEPSIS [None]
  - VOMITING [None]
